FAERS Safety Report 14165615 (Version 3)
Quarter: 2017Q4

REPORT INFORMATION
  Report Type: Spontaneous
  Country: IT (occurrence: IT)
  Receive Date: 20171107
  Receipt Date: 20171117
  Transmission Date: 20180321
  Serious: Yes (Other)
  Sender: FDA-Public Use
  Company Number: IT-PFIZER INC-2017476487

PATIENT
  Age: 80 Year
  Sex: Male

DRUGS (5)
  1. LANSOX [Suspect]
     Active Substance: LANSOPRAZOLE
     Indication: PANCREATITIS ACUTE
     Dosage: 1 DF, DAILY
     Route: 048
     Dates: start: 20171003, end: 20171020
  2. SAFLUTAN [Concomitant]
     Active Substance: TAFLUPROST
     Dosage: UNK
  3. NORVASC [Suspect]
     Active Substance: AMLODIPINE BESYLATE
     Indication: HYPERTENSION
     Dosage: 1 DF, DAILY
     Route: 048
     Dates: start: 20171003, end: 20171020
  4. ALIFLUS [Concomitant]
     Active Substance: FLUTICASONE PROPIONATE\SALMETEROL XINAFOATE
     Dosage: UNK
  5. OPTIVE PLUS [Concomitant]
     Dosage: UNK
     Dates: start: 20170920, end: 20171020

REACTIONS (1)
  - Toxic skin eruption [Recovering/Resolving]

NARRATIVE: CASE EVENT DATE: 20171020
